FAERS Safety Report 9484056 (Version 1)
Quarter: 2013Q3

REPORT INFORMATION
  Report Type: Spontaneous
  Country: US (occurrence: US)
  Receive Date: 20130828
  Receipt Date: 20130828
  Transmission Date: 20140515
  Serious: Yes (Hospitalization, Other)
  Sender: FDA-Public Use
  Company Number: US-AMGEN-KDL371850

PATIENT
  Age: 38 Year
  Sex: Male

DRUGS (3)
  1. ENBREL [Suspect]
     Indication: RHEUMATOID ARTHRITIS
     Dosage: 50 MG, QWK
     Route: 058
  2. ENBREL [Suspect]
     Indication: ANKYLOSING SPONDYLITIS
  3. ENBREL [Suspect]
     Indication: PSORIATIC ARTHROPATHY

REACTIONS (5)
  - Back pain [Not Recovered/Not Resolved]
  - Drug dependence [Recovered/Resolved]
  - Scoliosis [Not Recovered/Not Resolved]
  - Avian influenza [Not Recovered/Not Resolved]
  - Headache [Not Recovered/Not Resolved]
